FAERS Safety Report 5822130-X (Version None)
Quarter: 2008Q3

REPORT INFORMATION
  Report Type: 
  Country: None (occurrence: None)
  Receive Date: 20080725
  Receipt Date: 20080715
  Transmission Date: 20090109
  Serious: Yes (Hospitalization)
  Sender: FDA-Public Use
  Company Number: HQWYE740302AUG06

PATIENT
  Sex: Male
  Weight: 90.8 kg

DRUGS (22)
  1. NEORAL [Suspect]
     Indication: PROPHYLAXIS AGAINST TRANSPLANT REJECTION
     Route: 048
     Dates: start: 20030903, end: 20060101
  2. NEORAL [Suspect]
     Route: 048
     Dates: start: 20060101
  3. PREDNISONE TAB [Concomitant]
     Route: 048
     Dates: end: 20060101
  4. PREDNISONE TAB [Concomitant]
     Route: 045
     Dates: start: 20060101
  5. GABAPENTIN [Concomitant]
  6. AUGMENTIN '125' [Concomitant]
     Dosage: UNSPECIFIED
  7. CALCIUM CHLORIDE DIHYDRATE [Concomitant]
  8. CARDURA [Concomitant]
     Route: 048
     Dates: end: 20060101
  9. CARDURA [Concomitant]
     Route: 048
     Dates: start: 20060101
  10. LIPITOR [Concomitant]
  11. RENAGEL [Concomitant]
  12. ALLOPURINOL [Concomitant]
  13. HYDRALAZINE HCL [Concomitant]
  14. METOPROLOL TARTRATE [Concomitant]
  15. LASIX [Concomitant]
  16. AMOXICILLIN [Concomitant]
     Dosage: 500 MG EVERY 12 HOURS WITH 2 DAYS LEFT TO COMPLETE THE REGIMEN
  17. ARANESP [Concomitant]
  18. FAMVIR [Concomitant]
     Indication: PROPHYLAXIS
  19. POTASSIUM CHLORIDE [Concomitant]
     Route: 048
     Dates: end: 20060101
  20. POTASSIUM CHLORIDE [Concomitant]
     Route: 048
     Dates: start: 20060101
  21. CELLCEPT [Concomitant]
     Dates: end: 20060101
  22. CELLCEPT [Concomitant]
     Dates: start: 20060101

REACTIONS (3)
  - FAECAL INCONTINENCE [None]
  - HERPES ZOSTER [None]
  - MYELITIS TRANSVERSE [None]
